FAERS Safety Report 5005633-X (Version None)
Quarter: 2006Q2

REPORT INFORMATION
  Report Type: 
  Country: None (occurrence: None)
  Receive Date: 20060515
  Receipt Date: 20060503
  Transmission Date: 20061013
  Serious: Yes (Hospitalization)
  Sender: FDA-Public Use
  Company Number: GXKR2006FR02250

PATIENT
  Age: 15 Year
  Sex: Female

DRUGS (2)
  1. DOXYCYCLINE [Suspect]
     Indication: ACNE
     Dosage: 100 MG ORAL
     Route: 048
  2. GALENIC/ETHINYESTRADIOL/GESTODENE/ (ETHINYLESTRADIOL, GESTODENE) [Concomitant]

REACTIONS (6)
  - ASTHENIA [None]
  - DRUG ADMINISTRATION ERROR [None]
  - DYSPEPSIA [None]
  - DYSPHAGIA [None]
  - OESOPHAGEAL ULCER [None]
  - WEIGHT DECREASED [None]
